FAERS Safety Report 7083767-6 (Version None)
Quarter: 2010Q4

REPORT INFORMATION
  Report Type: 
  Country: None (occurrence: None)
  Receive Date: 20101103
  Receipt Date: 20101103
  Transmission Date: 20110411
  Serious: Yes (Other)
  Sender: FDA-Public Use
  Company Number: None

PATIENT
  Sex: Female
  Weight: 60 kg

DRUGS (1)
  1. LISINOPRIL [Suspect]
     Indication: HYPERTENSION
     Dosage: 20 MG DAILY ORALLY
     Route: 048
     Dates: start: 20090401, end: 20101005

REACTIONS (3)
  - LABORATORY TEST ABNORMAL [None]
  - OROPHARYNGEAL PAIN [None]
  - PYREXIA [None]
